FAERS Safety Report 7311681-7 (Version None)
Quarter: 2011Q1

REPORT INFORMATION
  Report Type: 
  Country: None (occurrence: None)
  Receive Date: 20110215
  Receipt Date: 20110215
  Transmission Date: 20110831
  Serious: No
  Sender: FDA-Public Use
  Company Number: None

PATIENT
  Age: 68 Year
  Sex: Female
  Weight: 75.2971 kg

DRUGS (2)
  1. AZITHROMYCIN [Suspect]
     Indication: DYSPNOEA
     Dosage: 500 MG THEN 250 MG 1 - DAY
     Dates: start: 20110110
  2. THEO-DUR [Suspect]
     Dosage: 200 MG 1 TWICE DAY
     Dates: start: 20110110

REACTIONS (2)
  - PRODUCT QUALITY ISSUE [None]
  - PEAK EXPIRATORY FLOW RATE DECREASED [None]
